FAERS Safety Report 4283072-7 (Version None)
Quarter: 2004Q1

REPORT INFORMATION
  Report Type: 
  Country: None (occurrence: None)
  Receive Date: 20040129
  Receipt Date: 20040114
  Transmission Date: 20041129
  Serious: Yes (Death)
  Sender: FDA-Public Use
  Company Number: 04011242

PATIENT
  Sex: Male

DRUGS (2)
  1. CARBAMAZEPINE TABLETS USP, 200MG [Suspect]
     Dosage: 200 MG, ORAL
     Route: 048
  2. ANTIHYPERTENSIVE MEDICATION [Concomitant]

REACTIONS (3)
  - CATATONIA [None]
  - MEDICATION ERROR [None]
  - UNEVALUABLE EVENT [None]
